FAERS Safety Report 5420545-5 (Version None)
Quarter: 2007Q3

REPORT INFORMATION
  Report Type: 
  Country: None (occurrence: None)
  Receive Date: 20070821
  Receipt Date: 20061013
  Transmission Date: 20080115
  Serious: No
  Sender: FDA-Public Use
  Company Number: US-KINGPHARMUSA00001-K200601307

PATIENT

DRUGS (9)
  1. CYTOMEL [Suspect]
     Indication: HYPOTHYROIDISM
     Dosage: 50 MCG, QD
     Route: 048
     Dates: start: 20030101, end: 20060928
  2. CYTOMEL [Suspect]
     Dosage: 50 MCG, QD
     Route: 048
     Dates: start: 20061011
  3. OXYCODONE HCL EXTENDED-RELEASE [Suspect]
     Indication: PAIN
     Dosage: 10 MG, UNK
     Dates: start: 20010101, end: 20051101
  4. OXYCODONE HCL EXTENDED-RELEASE [Suspect]
     Dosage: 20 MG, BID
     Route: 048
     Dates: start: 20051101, end: 20061011
  5. OXYCODONE HCL EXTENDED-RELEASE [Suspect]
     Dosage: 20 MG, BID
     Route: 048
     Dates: start: 20061001
  6. ESTRADIOL [Concomitant]
     Dosage: 2 MG, QD
     Dates: start: 20030101
  7. PROMETRIUM [Concomitant]
     Dosage: 100 MG, UNK
     Dates: start: 20030101
  8. LEVOTHYROXINE SODIUM [Concomitant]
     Dosage: 50 MCG, UNK
     Dates: start: 20030101
  9. METFORMIN HCL [Concomitant]
     Dosage: 500 MG, UNK
     Dates: start: 20020101

REACTIONS (1)
  - RASH PRURITIC [None]
